FAERS Safety Report 7090089-6 (Version None)
Quarter: 2010Q4

REPORT INFORMATION
  Report Type: 
  Country: None (occurrence: None)
  Receive Date: 20101105
  Receipt Date: 20101105
  Transmission Date: 20110411
  Serious: Yes (Other)
  Sender: FDA-Public Use
  Company Number: None

PATIENT
  Sex: Female
  Weight: 70.3075 kg

DRUGS (1)
  1. ANASTROZOLE (GENERIC TO ARIMIDEX 1MG) MFR - ROXANE [Suspect]
     Indication: BREAST CANCER
     Dosage: 1MG DAILEY  (ABOUT 1 1/2 YR TO DATE)

REACTIONS (1)
  - NIGHTMARE [None]
